FAERS Safety Report 21145881 (Version 1)
Quarter: 2022Q3

REPORT INFORMATION
  Report Type: Spontaneous
  Country: DE (occurrence: DE)
  Receive Date: 20220729
  Receipt Date: 20220729
  Transmission Date: 20221026
  Serious: Yes (Other)
  Sender: FDA-Public Use
  Company Number: DE-BIOGEN-2022BI01143089

PATIENT
  Sex: Female

DRUGS (2)
  1. TYSABRI [Suspect]
     Active Substance: NATALIZUMAB
     Indication: Multiple sclerosis
     Dosage: 300 MG, EVERY 7 WEEKS (DURING PREGNANCY), OUTSIDE PREGNANCY EVERY 4 WEEKS
     Route: 050
     Dates: start: 202006, end: 20220601
  2. TYSABRI [Suspect]
     Active Substance: NATALIZUMAB
     Dosage: 300 MG, EVERY 7 WEEKS (DURING PREGNANCY), OUTSIDE PREGNANCY EVERY 4 WEEKS
     Route: 050
     Dates: start: 202006, end: 20220601

REACTIONS (2)
  - Foetal heart rate decreased [Unknown]
  - Maternal exposure during pregnancy [Recovered/Resolved]
